FAERS Safety Report 9170656 (Version 1)
Quarter: 2013Q1

REPORT INFORMATION
  Report Type: Spontaneous
  Country: CH (occurrence: None)
  Receive Date: 20130312
  Receipt Date: 20130312
  Transmission Date: 20140127
  Serious: No
  Sender: FDA-Public Use
  Company Number: B873373A

PATIENT
  Age: 32 Year
  Sex: Female

DRUGS (3)
  1. ABACAVIR SULPHATE [Suspect]
     Indication: HIV INFECTION
  2. TENOFOVIR [Suspect]
     Indication: HIV INFECTION
  3. LOPINAVIR (LOPINAVIR) [Suspect]
     Indication: HIV INFECTION

REACTIONS (8)
  - Intracranial pressure increased [None]
  - Abdominal discomfort [None]
  - CD4 lymphocytes decreased [None]
  - Blood HIV RNA increased [None]
  - Brain oedema [None]
  - Brain herniation [None]
  - Encephalitis [None]
  - Dyspnoea [None]
